FAERS Safety Report 18779373 (Version 1)
Quarter: 2021Q1

REPORT INFORMATION
  Report Type: Spontaneous
  Country: US (occurrence: US)
  Receive Date: 20210125
  Receipt Date: 20210125
  Transmission Date: 20210419
  Serious: Yes (Hospitalization, Other)
  Sender: FDA-Public Use
  Company Number: US-HIKMA PHARMACEUTICALS USA INC.-US-H14001-21-53470

PATIENT
  Age: 28 Year
  Sex: Female

DRUGS (10)
  1. PYRIDOXINE [Concomitant]
     Active Substance: PYRIDOXINE
     Indication: HYPEREMESIS GRAVIDARUM
     Route: 065
  2. ONDANSETRON [Suspect]
     Active Substance: ONDANSETRON
     Dosage: REQUIRING ONLY TWO DOSES OF 4 MG ODSN FOR THE REMAINING SIX DAYS OF HER HOSPITALIZATION; THE PATIENT
     Route: 065
  3. ONDANSETRON [Suspect]
     Active Substance: ONDANSETRON
     Dosage: IT IS UNCLEAR HOW FREQUENTLY SHE SELF?ADMINISTERED ODSN
     Route: 065
  4. SERTRALINE [Concomitant]
     Active Substance: SERTRALINE HYDROCHLORIDE
     Indication: PSYCHOTIC SYMPTOM
     Route: 065
  5. SERTRALINE [Concomitant]
     Active Substance: SERTRALINE HYDROCHLORIDE
     Indication: MAJOR DEPRESSION
     Dosage: TITRATED UP
  6. ONDANSETRON [Suspect]
     Active Substance: ONDANSETRON
     Indication: HYPEREMESIS GRAVIDARUM
     Dosage: AS?NEEDED BASIS (PRN). THE FIRST ADMINISTRATION OF ODSN WAS ONE DAY AFTER ADMISSION WITH THE MAJORIT
     Route: 065
  7. DOXYLAMINE SUCCINATE. [Concomitant]
     Active Substance: DOXYLAMINE SUCCINATE
     Indication: HYPEREMESIS GRAVIDARUM
     Route: 065
  8. OLANZAPINE. [Concomitant]
     Active Substance: OLANZAPINE
     Indication: PSYCHOTIC SYMPTOM
     Route: 065
  9. OLANZAPINE. [Concomitant]
     Active Substance: OLANZAPINE
     Indication: MAJOR DEPRESSION
     Dosage: TITRATED UP
     Route: 065
  10. FAMOTIDINE. [Concomitant]
     Active Substance: FAMOTIDINE
     Indication: HYPEREMESIS GRAVIDARUM
     Route: 065

REACTIONS (3)
  - Hypertransaminasaemia [Recovering/Resolving]
  - Drug-induced liver injury [Recovering/Resolving]
  - Maternal exposure during pregnancy [Recovered/Resolved]
